FAERS Safety Report 14283121 (Version 13)
Quarter: 2020Q3

REPORT INFORMATION
  Report Type: Report from Study
  Country: US (occurrence: US)
  Receive Date: 20171213
  Receipt Date: 20200817
  Transmission Date: 20201102
  Serious: Yes (Hospitalization)
  Sender: FDA-Public Use
  Company Number: US-ACTELION-A-US2016-130798

PATIENT
  Age: 38 Year
  Sex: Female
  Weight: 49.89 kg

DRUGS (12)
  1. UPTRAVI [Suspect]
     Active Substance: SELEXIPAG
     Dosage: 1600 MCG, BID
     Route: 048
     Dates: start: 201705
  2. PREDNISONE. [Suspect]
     Active Substance: PREDNISONE
     Indication: PRODUCT USED FOR UNKNOWN INDICATION
     Route: 065
  3. ADCIRCA [Concomitant]
     Active Substance: TADALAFIL
  4. VELETRI [Suspect]
     Active Substance: EPOPROSTENOL
     Indication: PULMONARY HYPERTENSION
     Dosage: 47 NG/KG, PER MIN
     Route: 042
  5. UPTRAVI [Suspect]
     Active Substance: SELEXIPAG
     Indication: PULMONARY HYPERTENSION
     Dosage: 1000 MCG, BID
     Route: 048
     Dates: start: 201705
  6. VELETRI [Suspect]
     Active Substance: EPOPROSTENOL
     Dosage: 69 NG/KG, PER MIN
     Route: 042
  7. OPSUMIT [Concomitant]
     Active Substance: MACITENTAN
  8. ALYQ [Concomitant]
     Active Substance: TADALAFIL
  9. VELETRI [Suspect]
     Active Substance: EPOPROSTENOL
     Dosage: 74 NG/KG, PER MIN
     Route: 042
  10. VELETRI [Suspect]
     Active Substance: EPOPROSTENOL
     Dosage: 12 NG/KG, PER MIN
     Route: 042
  11. VELETRI [Suspect]
     Active Substance: EPOPROSTENOL
     Dosage: 69 NG/KG, PER MIN
     Route: 042
  12. VELETRI [Suspect]
     Active Substance: EPOPROSTENOL
     Dosage: 72 NG/KG, PER MIN
     Route: 042
     Dates: start: 20151208

REACTIONS (31)
  - Cardiac disorder [Unknown]
  - Eye disorder [Unknown]
  - Infection [Unknown]
  - Fluid retention [Recovered/Resolved]
  - Transplant evaluation [Unknown]
  - Weight decreased [Unknown]
  - Influenza [Unknown]
  - Dyspnoea [Unknown]
  - Cardiac failure [Unknown]
  - Cough [Unknown]
  - Ligament sprain [Unknown]
  - Fluid overload [Unknown]
  - Pancreatitis [Recovered/Resolved]
  - Hospitalisation [Unknown]
  - Gastroenteritis viral [Unknown]
  - Thyroid function test abnormal [Unknown]
  - Hypotension [Unknown]
  - Dehydration [Unknown]
  - Gastrointestinal bacterial overgrowth [Unknown]
  - Pain [Unknown]
  - Rhinorrhoea [Unknown]
  - Nasopharyngitis [Unknown]
  - Colitis [Unknown]
  - Application site irritation [Unknown]
  - Weight fluctuation [Unknown]
  - Neuropathy peripheral [Unknown]
  - Illness [Unknown]
  - Hypersensitivity [Unknown]
  - Pyrexia [Unknown]
  - Platelet count decreased [Unknown]
  - Abdominal pain lower [Recovered/Resolved]

NARRATIVE: CASE EVENT DATE: 20171008
